FAERS Safety Report 17114552 (Version 1)
Quarter: 2019Q4

REPORT INFORMATION
  Report Type: Spontaneous
  Country: SE (occurrence: SE)
  Receive Date: 20191205
  Receipt Date: 20191205
  Transmission Date: 20200122
  Serious: Yes (Hospitalization)
  Sender: FDA-Public Use
  Company Number: SE-ACCORD-164010

PATIENT
  Age: 93 Year
  Sex: Male

DRUGS (7)
  1. LOSARTAN. [Concomitant]
     Active Substance: LOSARTAN
  2. WARAN [Concomitant]
     Active Substance: WARFARIN SODIUM
     Dosage: STRENGTH 2.5 MG, ACCORDING TO TREATMENT SCHEDULE
  3. FURIX [Concomitant]
     Dosage: STRENGTH 40 MG, 2+1
  4. SPIRONOLACTONE. [Suspect]
     Active Substance: SPIRONOLACTONE
     Indication: CARDIAC FAILURE
     Route: 048
     Dates: start: 20191004, end: 20191016
  5. MOVICOL [Concomitant]
     Active Substance: POLYETHYLENE GLYCOL 3350\POTASSIUM CHLORIDE\SODIUM BICARBONATE\SODIUM CHLORIDE
  6. AZOPT [Concomitant]
     Active Substance: BRINZOLAMIDE
     Dosage: BILATERALLY
  7. METOPROLOL. [Concomitant]
     Active Substance: METOPROLOL

REACTIONS (2)
  - C-reactive protein increased [Recovered/Resolved]
  - Myalgia [Recovered/Resolved]

NARRATIVE: CASE EVENT DATE: 20191012
